FAERS Safety Report 7208643-7 (Version None)
Quarter: 2011Q1

REPORT INFORMATION
  Report Type: 
  Country: None (occurrence: None)
  Receive Date: 20110104
  Receipt Date: 20101123
  Transmission Date: 20110831
  Serious: Yes (Life-Threatening, Hospitalization, Other)
  Sender: FDA-Public Use
  Company Number: US-BAXTER-2010BH000148

PATIENT
  Age: 54 Year
  Sex: Female
  Weight: 107 kg

DRUGS (41)
  1. CLONIDINE HYDROCHLORIDE [Concomitant]
     Indication: PRODUCT USED FOR UNKNOWN INDICATION
     Route: 065
  2. ZEMPLAR [Concomitant]
     Indication: PRODUCT USED FOR UNKNOWN INDICATION
     Route: 065
  3. PHOSLO [Concomitant]
     Indication: PRODUCT USED FOR UNKNOWN INDICATION
     Route: 065
  4. ABILIFY [Concomitant]
     Indication: PRODUCT USED FOR UNKNOWN INDICATION
     Route: 048
  5. HEPARIN SODIUM INJECTION [Suspect]
     Indication: HAEMODIALYSIS
     Route: 042
     Dates: start: 20080104, end: 20080601
  6. HEPARIN SODIUM INJECTION [Suspect]
     Route: 042
     Dates: start: 20080623
  7. HEPARIN SODIUM INJECTION [Suspect]
     Route: 042
     Dates: start: 20090126, end: 20090126
  8. DIPHENHYDRAMINE [Concomitant]
     Indication: PRODUCT USED FOR UNKNOWN INDICATION
     Route: 065
  9. CALCIUM [Concomitant]
     Indication: PRODUCT USED FOR UNKNOWN INDICATION
     Route: 065
  10. DOC-Q-LACE [Concomitant]
     Indication: PRODUCT USED FOR UNKNOWN INDICATION
     Route: 065
  11. HEPARIN SODIUM INJECTION [Suspect]
     Route: 058
     Dates: start: 20080512, end: 20080522
  12. REGLAN [Concomitant]
     Indication: PRODUCT USED FOR UNKNOWN INDICATION
     Route: 065
  13. HEPARIN SODIUM INJECTION [Suspect]
     Indication: PROPHYLAXIS
     Route: 042
     Dates: start: 20080104, end: 20080601
  14. HEPARIN SODIUM INJECTION [Suspect]
     Route: 042
     Dates: start: 20090126, end: 20090126
  15. METHADONE HYDROCHLORIDE [Concomitant]
     Indication: PRODUCT USED FOR UNKNOWN INDICATION
     Route: 065
  16. METOPROLOL TARTRATE [Concomitant]
     Indication: PRODUCT USED FOR UNKNOWN INDICATION
     Route: 065
  17. ZOFRAN [Concomitant]
     Indication: PRODUCT USED FOR UNKNOWN INDICATION
     Route: 042
  18. HALDOL [Concomitant]
     Indication: PRODUCT USED FOR UNKNOWN INDICATION
     Route: 048
  19. HEPARIN SODIUM INJECTION [Suspect]
     Route: 058
     Dates: start: 20090321, end: 20090323
  20. HEPARIN SODIUM [Suspect]
     Indication: ACUTE MYOCARDIAL INFARCTION
     Route: 041
     Dates: start: 20080528, end: 20080529
  21. FERRLECIT                               /USA/ [Concomitant]
     Indication: PRODUCT USED FOR UNKNOWN INDICATION
     Route: 065
  22. COZAAR [Concomitant]
     Indication: PRODUCT USED FOR UNKNOWN INDICATION
     Route: 065
  23. EPOGEN [Concomitant]
     Indication: PRODUCT USED FOR UNKNOWN INDICATION
     Route: 065
  24. HEPARIN SODIUM INJECTION [Suspect]
     Route: 013
     Dates: start: 20080623
  25. PEPCID [Concomitant]
     Indication: PRODUCT USED FOR UNKNOWN INDICATION
     Route: 065
  26. SEROQUEL [Concomitant]
     Indication: PRODUCT USED FOR UNKNOWN INDICATION
     Route: 065
  27. NORVASK [Concomitant]
     Indication: PRODUCT USED FOR UNKNOWN INDICATION
     Route: 065
  28. PANTOPRAZOLE [Concomitant]
     Indication: PRODUCT USED FOR UNKNOWN INDICATION
     Route: 042
  29. ZOSYN [Concomitant]
     Indication: PRODUCT USED FOR UNKNOWN INDICATION
     Route: 065
  30. FLAGYL [Concomitant]
     Indication: PRODUCT USED FOR UNKNOWN INDICATION
     Route: 065
  31. UNASYN [Concomitant]
     Indication: PRODUCT USED FOR UNKNOWN INDICATION
     Route: 065
  32. HEPARIN SODIUM INJECTION [Suspect]
     Route: 058
     Dates: start: 20090321, end: 20090323
  33. HEPARIN SODIUM INJECTION [Suspect]
     Route: 058
     Dates: start: 20080512, end: 20080522
  34. HEPARIN LOCK FLUSH [Suspect]
     Indication: INTRAVENOUS CATHETER MANAGEMENT
     Route: 042
     Dates: start: 20080520, end: 20080522
  35. CAPLIN [Concomitant]
     Indication: PRODUCT USED FOR UNKNOWN INDICATION
     Route: 065
  36. COUMADIN [Concomitant]
     Indication: PRODUCT USED FOR UNKNOWN INDICATION
     Route: 065
  37. ZINC [Concomitant]
     Indication: PRODUCT USED FOR UNKNOWN INDICATION
     Route: 065
  38. HEPARIN SODIUM INJECTION [Suspect]
     Route: 042
     Dates: start: 20080623
  39. HEPARIN SODIUM INJECTION [Suspect]
     Route: 013
     Dates: start: 20080623
  40. EFFEXOR [Concomitant]
     Indication: PRODUCT USED FOR UNKNOWN INDICATION
     Route: 065
  41. VANCOMYCIN [Concomitant]
     Indication: PRODUCT USED FOR UNKNOWN INDICATION
     Route: 042

REACTIONS (42)
  - DEVICE RELATED INFECTION [None]
  - URINARY TRACT INFECTION [None]
  - VOMITING [None]
  - CARDIAC FAILURE CONGESTIVE [None]
  - BLOOD PRESSURE DECREASED [None]
  - EYE SWELLING [None]
  - THROMBOSIS IN DEVICE [None]
  - CORONARY ARTERY DISEASE [None]
  - OSTEOMYELITIS [None]
  - MALNUTRITION [None]
  - OEDEMA [None]
  - MUSCLE SPASMS [None]
  - ARTERIOSCLEROSIS [None]
  - ACINETOBACTER INFECTION [None]
  - CHILLS [None]
  - MALAISE [None]
  - CEREBROVASCULAR ACCIDENT [None]
  - VISION BLURRED [None]
  - ENTEROCOCCAL INFECTION [None]
  - DIZZINESS [None]
  - DELUSION [None]
  - BLOOD PRESSURE INCREASED [None]
  - CHEST PAIN [None]
  - CHEST DISCOMFORT [None]
  - ASTHMA [None]
  - KLEBSIELLA INFECTION [None]
  - ABDOMINAL PAIN [None]
  - CARDIAC FAILURE [None]
  - WEANING FAILURE [None]
  - CULTURE WOUND POSITIVE [None]
  - ESCHERICHIA INFECTION [None]
  - LOSS OF CONSCIOUSNESS [None]
  - DYSPNOEA [None]
  - HYPERHIDROSIS [None]
  - HEADACHE [None]
  - CONVULSION [None]
  - UPPER GASTROINTESTINAL HAEMORRHAGE [None]
  - STAPHYLOCOCCAL INFECTION [None]
  - DIARRHOEA [None]
  - MENTAL STATUS CHANGES [None]
  - WHITE BLOOD CELLS STOOL [None]
  - NAUSEA [None]
